FAERS Safety Report 22143433 (Version 1)
Quarter: 2023Q1

REPORT INFORMATION
  Report Type: Spontaneous
  Country: US (occurrence: US)
  Receive Date: 20230327
  Receipt Date: 20230327
  Transmission Date: 20230417
  Serious: No
  Sender: FDA-Public Use
  Company Number: US-Prasco Laboratories-PRAS20230080

PATIENT
  Sex: Female
  Weight: 79.38 kg

DRUGS (1)
  1. ESTRADIOL [Suspect]
     Active Substance: ESTRADIOL
     Indication: Product used for unknown indication
     Dosage: UNKNOWN
     Route: 067

REACTIONS (5)
  - Dysuria [Unknown]
  - Drug ineffective [Unknown]
  - Hot flush [Unknown]
  - Menopausal symptoms [Unknown]
  - Product use complaint [Unknown]
